FAERS Safety Report 4934018-7 (Version None)
Quarter: 2006Q1

REPORT INFORMATION
  Report Type: 
  Country: None (occurrence: None)
  Receive Date: 20060303
  Receipt Date: 20060223
  Transmission Date: 20060701
  Serious: Yes (Other)
  Sender: FDA-Public Use
  Company Number: HQWYE004224FEB06

PATIENT
  Age: 67 Year
  Sex: Female

DRUGS (3)
  1. SUPRAX [Suspect]
     Indication: SINUSITIS
     Dosage: 400MG DAILY, ORAL
     Route: 048
     Dates: start: 20051102, end: 20051105
  2. KEPPRA [Concomitant]
  3. LAMICTAL [Concomitant]

REACTIONS (2)
  - ANOREXIA [None]
  - CLOSTRIDIUM COLITIS [None]
